FAERS Safety Report 21107062 (Version 1)
Quarter: 2022Q3

REPORT INFORMATION
  Report Type: Spontaneous
  Country: US (occurrence: None)
  Receive Date: 20220720
  Receipt Date: 20220720
  Transmission Date: 20221026
  Serious: Yes (Other)
  Sender: FDA-Public Use
  Company Number: None

PATIENT
  Age: 74 Year
  Sex: Male
  Weight: 116.1 kg

DRUGS (19)
  1. VIAGRA [Suspect]
     Active Substance: SILDENAFIL CITRATE
     Indication: Erectile dysfunction
     Dosage: OTHER QUANTITY : 1 TABLET(S);?FREQUENCY : AS NEEDED;?
     Route: 048
     Dates: end: 20120728
  2. METFORMIN [Concomitant]
     Active Substance: METFORMIN HYDROCHLORIDE
  3. CARVEDILOL [Concomitant]
     Active Substance: CARVEDILOL
  4. LOSARTAN [Concomitant]
     Active Substance: LOSARTAN
  5. Jardine [Concomitant]
  6. HYDROCHLOROTHIAZIDE [Concomitant]
     Active Substance: HYDROCHLOROTHIAZIDE
  7. ROSUVASTATIN [Concomitant]
     Active Substance: ROSUVASTATIN
  8. ALLOPURINOL [Concomitant]
     Active Substance: ALLOPURINOL
  9. AMLODIPINE [Concomitant]
     Active Substance: AMLODIPINE BESYLATE
  10. EPLERENONE [Concomitant]
     Active Substance: EPLERENONE
  11. VICTOZA [Concomitant]
     Active Substance: LIRAGLUTIDE
  12. LANTUS [Concomitant]
     Active Substance: INSULIN GLARGINE
  13. NOVOLOG [Concomitant]
     Active Substance: INSULIN ASPART
  14. CPAP machine [Concomitant]
  15. ASPIRIN [Concomitant]
     Active Substance: ASPIRIN
  16. iron liquid supplement [Concomitant]
  17. B-12 supplement [Concomitant]
  18. VITAMIN D3 [Concomitant]
     Active Substance: CHOLECALCIFEROL
  19. COENZYME Q10 [Concomitant]
     Active Substance: DIETARY SUPPLEMENT\UBIDECARENONE

REACTIONS (2)
  - Dysphagia [None]
  - Throat tightness [None]

NARRATIVE: CASE EVENT DATE: 20100514
